FAERS Safety Report 6287800-0 (Version None)
Quarter: 2009Q3

REPORT INFORMATION
  Report Type: 
  Country: None (occurrence: None)
  Receive Date: 20090729
  Receipt Date: 20090721
  Transmission Date: 20100115
  Serious: Yes (Other)
  Sender: FDA-Public Use
  Company Number: US-BIOGENIDEC-2009BI019221

PATIENT
  Age: 47 Year
  Sex: Male
  Weight: 129 kg

DRUGS (4)
  1. TYSABRI [Suspect]
     Indication: MULTIPLE SCLEROSIS
     Route: 042
     Dates: start: 20090213
  2. NORTIPTYLINE [Concomitant]
     Route: 048
     Dates: start: 20010101
  3. DOXAZOSIN MESYLATE [Concomitant]
     Route: 048
     Dates: start: 20010101
  4. DESLORATADINE [Concomitant]
     Route: 048
     Dates: start: 20080101

REACTIONS (1)
  - CONVULSION [None]
